FAERS Safety Report 5529979-1 (Version None)
Quarter: 2007Q4

REPORT INFORMATION
  Report Type: 
  Country: None (occurrence: None)
  Receive Date: 20071129
  Receipt Date: 20071008
  Transmission Date: 20080405
  Serious: No
  Sender: FDA-Public Use
  Company Number: US-ABBOTT-07P-163-0419983-00

PATIENT
  Sex: Female

DRUGS (2)
  1. MERIDIA [Suspect]
     Indication: WEIGHT CONTROL
     Route: 048
  2. MERIDIA [Suspect]
     Indication: BLOOD CHOLESTEROL DECREASED
     Route: 048

REACTIONS (1)
  - DRUG INEFFECTIVE [None]
